FAERS Safety Report 4947403-4 (Version None)
Quarter: 2006Q1

REPORT INFORMATION
  Report Type: 
  Country: None (occurrence: None)
  Receive Date: 20060317
  Receipt Date: 20050420
  Transmission Date: 20060701
  Serious: Yes (Hospitalization)
  Sender: FDA-Public Use
  Company Number: US-MERCK-0504USA03955

PATIENT
  Age: 55 Year
  Sex: Male
  Weight: 123 kg

DRUGS (4)
  1. VIOXX [Suspect]
     Indication: ARTHRALGIA
     Route: 048
     Dates: start: 20010101, end: 20040901
  2. VIOXX [Suspect]
     Route: 048
     Dates: start: 20010101, end: 20040901
  3. VIOXX [Suspect]
     Route: 048
     Dates: start: 20010101, end: 20040901
  4. VIOXX [Suspect]
     Route: 048
     Dates: start: 20010101, end: 20040901

REACTIONS (13)
  - ARTERIAL OCCLUSIVE DISEASE [None]
  - BLINDNESS [None]
  - CEREBROVASCULAR ACCIDENT [None]
  - CORONARY ARTERY OCCLUSION [None]
  - DIABETES MELLITUS NON-INSULIN-DEPENDENT [None]
  - DIABETIC RETINOPATHY [None]
  - HEMIANOPIA [None]
  - HYPERTENSION [None]
  - INJURY [None]
  - MENISCUS LESION [None]
  - MYOCARDIAL INFARCTION [None]
  - NEPHROLITHIASIS [None]
  - OVERDOSE [None]
